FAERS Safety Report 19051307 (Version 1)
Quarter: 2021Q1

REPORT INFORMATION
  Report Type: Spontaneous
  Country: US (occurrence: US)
  Receive Date: 20210324
  Receipt Date: 20210324
  Transmission Date: 20210420
  Serious: Yes (Hospitalization)
  Sender: FDA-Public Use
  Company Number: None

PATIENT
  Age: 37 Year
  Sex: Female
  Weight: 63 kg

DRUGS (1)
  1. KETOROLAC TROMETHAMINE (KETOROLAC TROMETHAMINE 30MG/ML INJ, SYRINGE, ) [Suspect]
     Active Substance: KETOROLAC TROMETHAMINE
     Indication: PAIN
     Route: 030
     Dates: start: 20210318, end: 20210319

REACTIONS (2)
  - Acute kidney injury [None]
  - Disease complication [None]

NARRATIVE: CASE EVENT DATE: 20210320
